FAERS Safety Report 7946419-3 (Version None)
Quarter: 2011Q4

REPORT INFORMATION
  Report Type: 
  Country: None (occurrence: None)
  Receive Date: 20111129
  Receipt Date: 20111101
  Transmission Date: 20120403
  Serious: No
  Sender: FDA-Public Use
  Company Number: US-BAYER-2011-105844

PATIENT
  Age: 36 Year
  Sex: Female

DRUGS (1)
  1. MIRENA [Suspect]
     Indication: CONTRACEPTION
     Dosage: 20 MCG/24HR, CONT
     Route: 015
     Dates: start: 20110415, end: 20110912

REACTIONS (5)
  - BREAST TENDERNESS [None]
  - CHEST PAIN [None]
  - BACK PAIN [None]
  - AMENORRHOEA [None]
  - EMOTIONAL DISORDER [None]
